FAERS Safety Report 4719410-8 (Version None)
Quarter: 2005Q3

REPORT INFORMATION
  Report Type: 
  Country: None (occurrence: None)
  Receive Date: 20050721
  Receipt Date: 20041020
  Transmission Date: 20060218
  Serious: No
  Sender: FDA-Public Use
  Company Number: US-BRISTOL-MYERS SQUIBB COMPANY-12738647

PATIENT
  Age: 61 Year
  Sex: Female
  Weight: 54 kg

DRUGS (7)
  1. ESTRADIOL [Suspect]
     Route: 048
     Dates: start: 20040101
  2. PROZAC [Concomitant]
  3. DALMANE [Concomitant]
  4. XANAX [Concomitant]
  5. PRILOSEC [Concomitant]
  6. OCUVITE [Concomitant]
  7. LIPITOR [Concomitant]

REACTIONS (1)
  - HOT FLUSH [None]
